FAERS Safety Report 8641015 (Version 4)
Quarter: 2013Q2

REPORT INFORMATION
  Report Type: Spontaneous
  Country: US (occurrence: US)
  Receive Date: 20120628
  Receipt Date: 20130520
  Transmission Date: 20140414
  Serious: Yes (Hospitalization)
  Sender: FDA-Public Use
  Company Number: US-BAYER-2012-062416

PATIENT
  Age: 41 Year
  Sex: Female
  Weight: 61.22 kg

DRUGS (11)
  1. YAZ [Suspect]
     Indication: CONTRACEPTION
     Dosage: UNK
     Dates: start: 20110131, end: 20110619
  2. YAZ [Suspect]
     Indication: MENSTRUATION IRREGULAR
  3. GIANVI [Suspect]
     Indication: CONTRACEPTION
     Dosage: UNK
     Dates: start: 20110815, end: 20120220
  4. DEXILANT [Concomitant]
     Dosage: 600 MG, UNK
     Route: 048
     Dates: start: 20120130
  5. NSAID^S [Concomitant]
  6. ANTIMIGRAINE PREPARATIONS [Concomitant]
  7. MORPHINE [Concomitant]
     Indication: PAIN
  8. PROTON PUMP INHIBITORS [Concomitant]
  9. CALCIUM [Concomitant]
  10. OMEPRAZOLE [Concomitant]
     Dosage: 40 MG, UNK
     Dates: start: 20111128
  11. LANSOPRAZOLE [Concomitant]

REACTIONS (7)
  - Pulmonary embolism [Recovered/Resolved]
  - Deep vein thrombosis [Recovering/Resolving]
  - Thrombophlebitis superficial [Recovering/Resolving]
  - Chest pain [Recovered/Resolved]
  - Dyspnoea [Recovered/Resolved]
  - Injury [Recovering/Resolving]
  - Atelectasis [Recovered/Resolved]
